FAERS Safety Report 24604847 (Version 2)
Quarter: 2024Q4

REPORT INFORMATION
  Report Type: Spontaneous
  Country: US (occurrence: US)
  Receive Date: 20241111
  Receipt Date: 20241112
  Transmission Date: 20250114
  Serious: Yes (Other)
  Sender: UCB
  Company Number: US-UCBSA-2024055992

PATIENT
  Sex: Male
  Weight: 58.96 kg

DRUGS (3)
  1. KEPPRA [Suspect]
     Active Substance: LEVETIRACETAM
     Indication: Seizure
     Dosage: UNK
  2. FYCOMPA [Concomitant]
     Active Substance: PERAMPANEL
     Indication: Seizure
     Dosage: 4 MILLIGRAM, ONCE DAILY (QD)
     Route: 048
  3. EPIDIOLEX [Concomitant]
     Active Substance: CANNABIDIOL
     Indication: Product used for unknown indication
     Dosage: 6 MILLILITER, 2X/DAY (BID)

REACTIONS (17)
  - Seizure [Not Recovered/Not Resolved]
  - Loss of consciousness [Unknown]
  - Generalised tonic-clonic seizure [Unknown]
  - Seizure cluster [Unknown]
  - Drop attacks [Unknown]
  - Fatigue [Unknown]
  - Cognitive disorder [Unknown]
  - Visual impairment [Unknown]
  - Musculoskeletal stiffness [Unknown]
  - Urinary incontinence [Unknown]
  - Drooling [Unknown]
  - Sensory disturbance [Unknown]
  - Tongue biting [Unknown]
  - Lacrimation increased [Unknown]
  - Postictal state [Unknown]
  - Pyrexia [Unknown]
  - Gastroenteritis viral [Unknown]

NARRATIVE: CASE EVENT DATE: 20210101
